FAERS Safety Report 4651867-3 (Version None)
Quarter: 2005Q2

REPORT INFORMATION
  Report Type: 
  Country: None (occurrence: None)
  Receive Date: 20050504
  Receipt Date: 20041203
  Transmission Date: 20051028
  Serious: Yes (Other)
  Sender: FDA-Public Use
  Company Number: GB-GLAXOSMITHKLINE-B0359762A

PATIENT
  Sex: Male

DRUGS (2)
  1. PAROXETINE HCL [Suspect]
     Indication: OBSESSIVE-COMPULSIVE DISORDER
     Dosage: 20MG SEE DOSAGE TEXT
     Route: 065
     Dates: start: 19981001, end: 20010713
  2. PROPRANOLOL [Concomitant]
     Route: 065
     Dates: start: 20010704

REACTIONS (2)
  - ILL-DEFINED DISORDER [None]
  - SUICIDAL IDEATION [None]
